FAERS Safety Report 23322534 (Version 1)
Quarter: 2023Q4

REPORT INFORMATION
  Report Type: Spontaneous
  Country: US (occurrence: US)
  Receive Date: 20231220
  Receipt Date: 20231220
  Transmission Date: 20240110
  Serious: No
  Sender: FDA-Public Use
  Company Number: US-GALDERMA-US2023015193

PATIENT

DRUGS (1)
  1. DIFFERIN GEL [Suspect]
     Active Substance: ADAPALENE
     Indication: Acne
     Dosage: 1 DOSAGE FORM, 1.6 OZ, USED ONCE MAY BE TWICE A DAY
     Route: 061

REACTIONS (2)
  - Therapeutic response unexpected [Recovered/Resolved]
  - Product container issue [Recovered/Resolved]
